FAERS Safety Report 17928457 (Version 1)
Quarter: 2020Q2

REPORT INFORMATION
  Report Type: Spontaneous
  Country: CA (occurrence: CA)
  Receive Date: 20200623
  Receipt Date: 20200623
  Transmission Date: 20200714
  Serious: Yes (Hospitalization)
  Sender: FDA-Public Use
  Company Number: CA-ACCORD-186284

PATIENT
  Age: 15 Year
  Sex: Female
  Weight: 57 kg

DRUGS (15)
  1. IFOSFAMIDE. [Concomitant]
     Active Substance: IFOSFAMIDE
  2. DEXAMETHASONE. [Concomitant]
     Active Substance: DEXAMETHASONE
  3. CARBOPLATIN. [Concomitant]
     Active Substance: CARBOPLATIN
     Dosage: SOLUTION INTRAVENOUS
  4. CYCLOPHOSPHAMIDE/CYCLOPHOSPHAMIDE MONOHYDRATE [Concomitant]
     Active Substance: CYCLOPHOSPHAMIDE
  5. BRENTUXIMAB VEDOTIN [Concomitant]
     Active Substance: BRENTUXIMAB VEDOTIN
     Route: 042
  6. MELPHALAN. [Suspect]
     Active Substance: MELPHALAN
     Indication: HODGKIN^S DISEASE
     Dosage: 1 EVERY 1 DAYS
     Route: 042
  7. BUSULFEX [Suspect]
     Active Substance: BUSULFAN
     Indication: HODGKIN^S DISEASE
     Dosage: 1 EVERY 1 DAYS, SOLUTION INTRAVENOUS
     Route: 042
  8. GEMCITABINE/GEMCITABINE HYDROCHLORIDE [Suspect]
     Active Substance: GEMCITABINE\GEMCITABINE HYDROCHLORIDE
     Indication: HODGKIN^S DISEASE
     Dosage: 1 EVERY 1 DAYS
     Route: 042
  9. DOXORUBICIN [Concomitant]
     Active Substance: DOXORUBICIN
  10. ETOPOSIDE. [Concomitant]
     Active Substance: ETOPOSIDE
  11. VINCRISTINE [Concomitant]
     Active Substance: VINCRISTINE
  12. VINORELBINE [Concomitant]
     Active Substance: VINORELBINE TARTRATE
  13. BUSULFAN. [Suspect]
     Active Substance: BUSULFAN
     Indication: HODGKIN^S DISEASE
     Dosage: 1 EVERY 1 DAYS
     Route: 042
  14. BLEOMYCIN [Concomitant]
     Active Substance: BLEOMYCIN SULFATE
  15. PREDNISONE. [Concomitant]
     Active Substance: PREDNISONE

REACTIONS (6)
  - Erythema [Recovered/Resolved]
  - Mucosal inflammation [Recovered/Resolved]
  - Condition aggravated [Recovered/Resolved]
  - Off label use [Unknown]
  - Dysphagia [Recovered/Resolved]
  - Neoplasm progression [Recovered/Resolved]
